FAERS Safety Report 20353529 (Version 3)
Quarter: 2022Q4

REPORT INFORMATION
  Report Type: Spontaneous
  Country: US (occurrence: US)
  Receive Date: 20220119
  Receipt Date: 20221019
  Transmission Date: 20230112
  Serious: No
  Sender: FDA-Public Use
  Company Number: US-CELLTRION INC.-2022US000404

PATIENT

DRUGS (2)
  1. INFLIXIMAB [Suspect]
     Active Substance: INFLIXIMAB
     Indication: Congenital coronary artery malformation
     Dosage: 10 MG/KG
     Route: 042
  2. ANAKINRA [Concomitant]
     Active Substance: ANAKINRA
     Indication: Congenital coronary artery malformation
     Dosage: UNK
     Route: 042

REACTIONS (1)
  - Off label use [Unknown]
